FAERS Safety Report 8104902-4 (Version None)
Quarter: 2012Q1

REPORT INFORMATION
  Report Type: 
  Country: None (occurrence: None)
  Receive Date: 20120201
  Receipt Date: 20120130
  Transmission Date: 20120608
  Serious: Yes (Congenital Anomaly)
  Sender: FDA-Public Use
  Company Number: US-GLAXOSMITHKLINE-A0934807A

PATIENT
  Sex: Male

DRUGS (3)
  1. MULTI-VITAMINS [Concomitant]
     Route: 064
  2. PAXIL [Suspect]
     Indication: POSTPARTUM DEPRESSION
     Route: 064
     Dates: start: 19980223
  3. FOLIC ACID [Concomitant]
     Route: 064

REACTIONS (3)
  - CONGENITAL AORTIC VALVE INCOMPETENCE [None]
  - PATENT DUCTUS ARTERIOSUS [None]
  - FOETAL EXPOSURE DURING PREGNANCY [None]
